FAERS Safety Report 20207504 (Version 2)
Quarter: 2021Q4

REPORT INFORMATION
  Report Type: Spontaneous
  Country: RU (occurrence: RU)
  Receive Date: 20211220
  Receipt Date: 20211230
  Transmission Date: 20220303
  Serious: Yes (Hospitalization)
  Sender: FDA-Public Use
  Company Number: RU-BAYER-2021A267491

PATIENT
  Sex: Female

DRUGS (1)
  1. DROSPIRENONE\ETHINYL ESTRADIOL [Suspect]
     Active Substance: DROSPIRENONE\ETHINYL ESTRADIOL
     Indication: Hormone level abnormal
     Dosage: UNK
     Route: 048
     Dates: start: 2011

REACTIONS (7)
  - Multiple sclerosis [None]
  - Hypoaesthesia [None]
  - Blindness [None]
  - Peripheral swelling [None]
  - Stress [None]
  - Product use in unapproved indication [None]
  - Urinary hesitation [None]

NARRATIVE: CASE EVENT DATE: 20170101
